FAERS Safety Report 18919643 (Version 1)
Quarter: 2021Q1

REPORT INFORMATION
  Report Type: Report from Study
  Country: None (occurrence: US)
  Receive Date: 20210221
  Receipt Date: 20210221
  Transmission Date: 20210420
  Serious: Yes (Hospitalization)
  Sender: FDA-Public Use
  Company Number: US-ABBVIE-20K-163-3673197-00

PATIENT
  Age: 57 Year
  Sex: Female
  Weight: 68.1 kg

DRUGS (4)
  1. HUMIRA [Suspect]
     Active Substance: ADALIMUMAB
     Indication: CROHN^S DISEASE
     Dosage: CITRATE FREE
     Route: 058
     Dates: start: 201612, end: 20201011
  2. PANTOPRAZOLE [Concomitant]
     Active Substance: PANTOPRAZOLE
     Indication: PRODUCT USED FOR UNKNOWN INDICATION
  3. REMICADE [Concomitant]
     Active Substance: INFLIXIMAB
     Indication: INTESTINAL OBSTRUCTION
  4. MODERNA COVID?19 VACCINE [Concomitant]
     Active Substance: CX-024414
     Indication: COVID-19 IMMUNISATION
     Dosage: MANUFACTURER: MODERNA
     Route: 030
     Dates: start: 20210213, end: 20210213

REACTIONS (8)
  - Hypophagia [Recovering/Resolving]
  - Fluid intake reduced [Recovering/Resolving]
  - Drug ineffective [Unknown]
  - Dehydration [Recovered/Resolved]
  - Crohn^s disease [Recovered/Resolved]
  - Drug level decreased [Not Recovered/Not Resolved]
  - Faeces hard [Recovered/Resolved]
  - Back pain [Recovered/Resolved]

NARRATIVE: CASE EVENT DATE: 202010
